FAERS Safety Report 9025384 (Version 1)
Quarter: 2013Q1

REPORT INFORMATION
  Report Type: Other
  Country: IT (occurrence: IT)
  Receive Date: 20130122
  Receipt Date: 20130122
  Transmission Date: 20140127
  Serious: Yes (Hospitalization)
  Sender: FDA-Public Use
  Company Number: IT-WATSON-2013-00618

PATIENT
  Age: 71 Year
  Sex: Female

DRUGS (7)
  1. ALPRAZOLAM (UNKNOWN) [Suspect]
     Indication: ANXIETY
     Dosage: 30 GTT, DAILY
     Route: 048
     Dates: start: 20080101, end: 20121122
  2. LAMICTAL [Suspect]
     Indication: BIPOLAR DISORDER
     Dosage: 1 DF, DAILY
     Route: 048
     Dates: start: 20080101, end: 20121122
  3. FEVARIN [Suspect]
     Indication: DEPRESSION
     Dosage: 0.5 DF, DAILY
     Route: 048
     Dates: start: 20110101, end: 20121122
  4. ANAFRANIL [Suspect]
     Indication: BIPOLAR DISORDER
     Dosage: 1 DF, DAILY
     Route: 048
     Dates: start: 20121022, end: 20121122
  5. PROVISACOR [Concomitant]
     Indication: TYPE 2 DIABETES MELLITUS
     Dosage: UNK, UNKNOWN
     Route: 065
  6. CARDIOASPIRIN [Concomitant]
     Indication: PRODUCT USED FOR UNKNOWN INDICATION
     Dosage: UNK, UNKNOWN
     Route: 065
  7. METFORMIN [Concomitant]
     Indication: TYPE 2 DIABETES MELLITUS
     Dosage: UNK, UNKNOWN
     Route: 065

REACTIONS (4)
  - Muscle rigidity [Recovering/Resolving]
  - Tremor [Recovering/Resolving]
  - Drug level increased [Unknown]
  - Drug interaction [Unknown]
